FAERS Safety Report 9603380 (Version 2)
Quarter: 2013Q4

REPORT INFORMATION
  Report Type: Report from Study
  Country: US (occurrence: US)
  Receive Date: 20131007
  Receipt Date: 20131007
  Transmission Date: 20140711
  Serious: Yes (Hospitalization, Other)
  Sender: FDA-Public Use
  Company Number: US-ABBVIE-12P-163-1004441-00

PATIENT
  Sex: Female

DRUGS (3)
  1. KALETRA 200/50 [Suspect]
     Indication: HIV INFECTION
     Dosage: 200/50
     Dates: end: 2007
  2. KALETRA 200/50 [Suspect]
     Dosage: 2 TABLETS 2 TIMES DAILY (200/50)
     Dates: start: 200905
  3. KALETRA 200/50 [Suspect]
     Dosage: 200/50
     Dates: start: 2010

REACTIONS (4)
  - Gun shot wound [Recovered/Resolved]
  - Internal injury [Recovered/Resolved]
  - Diarrhoea [Recovered/Resolved]
  - Nausea [Recovered/Resolved]
